FAERS Safety Report 25150550 (Version 1)
Quarter: 2025Q2

REPORT INFORMATION
  Report Type: Spontaneous
  Country: US (occurrence: None)
  Receive Date: 20250401
  Receipt Date: 20250401
  Transmission Date: 20250717
  Serious: Yes (Hospitalization, Other)
  Sender: FDA-CTU
  Company Number: None

PATIENT
  Age: 81 Year
  Sex: Male
  Weight: 80.3 kg

DRUGS (1)
  1. IMFINZI [Suspect]
     Active Substance: DURVALUMAB
     Dates: start: 20250328

REACTIONS (6)
  - Infusion related reaction [None]
  - Back pain [None]
  - Arthralgia [None]
  - Arthralgia [None]
  - Oxygen saturation decreased [None]
  - Blood pressure increased [None]

NARRATIVE: CASE EVENT DATE: 20250328
